FAERS Safety Report 4424281-3 (Version None)
Quarter: 2004Q3

REPORT INFORMATION
  Report Type: 
  Country: None (occurrence: None)
  Receive Date: 20040809
  Receipt Date: 20040726
  Transmission Date: 20050211
  Serious: Yes (Other)
  Sender: FDA-Public Use
  Company Number: 2004050717

PATIENT
  Age: 32 Year
  Sex: Female
  Weight: 57.8 kg

DRUGS (15)
  1. VFEND [Suspect]
     Indication: ASPERGILLOSIS
     Dosage: 440 MG (220 MG, 2 IN 1 D), INTRAVENOUS
     Route: 042
     Dates: start: 20040717, end: 20040720
  2. ZIDOVUDINE [Suspect]
     Indication: IMMUNOSUPPRESSION
  3. CASPOFUNGIN [Concomitant]
  4. ANTIBIOTICS [Concomitant]
  5. DOCUSATE [Concomitant]
  6. FERROUS SULFATE TAB [Concomitant]
  7. INSULIN [Concomitant]
  8. BACTRIM [Concomitant]
  9. LACTULOSE [Concomitant]
  10. METHADONE HCL [Concomitant]
  11. METOPROLOL [Concomitant]
  12. ZIDOVUDINE W/LAMIVUDINE (LAMIVUDINE, ZIDOVUDINE) [Concomitant]
  13. ACETAMINOPHEN [Concomitant]
  14. ALBUTEROL SULFATE [Concomitant]
  15. VICODIN [Concomitant]

REACTIONS (8)
  - ALANINE AMINOTRANSFERASE INCREASED [None]
  - ASPARTATE AMINOTRANSFERASE INCREASED [None]
  - BILIRUBIN CONJUGATED INCREASED [None]
  - DRUG INTERACTION [None]
  - HAEMATOCRIT DECREASED [None]
  - HAEMOGLOBIN DECREASED [None]
  - LIVER FUNCTION TEST ABNORMAL [None]
  - RED BLOOD CELL COUNT DECREASED [None]
